FAERS Safety Report 7370779-8 (Version None)
Quarter: 2011Q1

REPORT INFORMATION
  Report Type: 
  Country: None (occurrence: None)
  Receive Date: 20110324
  Receipt Date: 20110316
  Transmission Date: 20110831
  Serious: Yes (Death)
  Sender: FDA-Public Use
  Company Number: JP-AMGEN-JPNSP2011010013

PATIENT
  Age: 60 Year
  Sex: Male
  Weight: 58 kg

DRUGS (6)
  1. ENBREL [Suspect]
     Dosage: 50 MG 1 TIME PER 2 WEEKS
     Route: 058
     Dates: start: 20110202, end: 20110209
  2. PREDNISOLONE [Concomitant]
     Dosage: 4 MG, QWK
     Route: 048
  3. ENBREL [Suspect]
     Indication: RHEUMATOID ARTHRITIS
     Dosage: 25 MG 1 TIME WEEKLY
     Route: 058
     Dates: start: 20100609, end: 20110105
  4. RHEUMATREX [Concomitant]
     Dosage: 8 MG, WEEKLY
     Route: 048
  5. AZULFIDINE [Concomitant]
     Dosage: 1000 MG, 2X/DAY
     Route: 048
  6. HYPEN [Concomitant]
     Dosage: 400 MG, QWK
     Route: 048

REACTIONS (2)
  - SUDDEN DEATH [None]
  - MYOCARDIAL INFARCTION [None]
